FAERS Safety Report 8915486 (Version 1)
Quarter: 2012Q4

REPORT INFORMATION
  Report Type: 
  Country: US (occurrence: US)
  Receive Date: 20121119
  Receipt Date: 20121119
  Transmission Date: 20130627
  Serious: No
  Sender: FDA-Public Use
  Company Number: US-PFIZER INC-2012288352

PATIENT
  Sex: Male

DRUGS (3)
  1. LIPITOR [Suspect]
     Dosage: 20 mg, UNK
     Route: 048
  2. LIPITOR [Suspect]
     Dosage: 40 mg, UNK
     Route: 048
  3. LIPITOR [Suspect]
     Dosage: 60 mg, UNK
     Route: 048

REACTIONS (1)
  - Blood glucose increased [Unknown]
